FAERS Safety Report 10514214 (Version 2)
Quarter: 2015Q1

REPORT INFORMATION
  Report Type: Spontaneous
  Country: GB (occurrence: GB)
  Receive Date: 20141013
  Receipt Date: 20150220
  Transmission Date: 20150720
  Serious: Yes (Hospitalization)
  Sender: FDA-Public Use
  Company Number: GB-TEVA-513823ISR

PATIENT
  Age: 47 Year
  Sex: Male

DRUGS (8)
  1. NYSTATIN. [Concomitant]
     Active Substance: NYSTATIN
  2. PARACETAMOL [Concomitant]
     Active Substance: ACETAMINOPHEN
     Dosage: 2000 MILLIGRAM DAILY;
  3. LANSOPRAZOLE. [Concomitant]
     Active Substance: LANSOPRAZOLE
     Dosage: 60 MILLIGRAM DAILY;
  4. FERROUS SULFATE [Concomitant]
     Active Substance: FERROUS SULFATE\FERROUS SULFATE, DRIED
     Dosage: 600 MILLIGRAM DAILY;
  5. ALENDRONIC ACID [Suspect]
     Active Substance: ALENDRONIC ACID
     Route: 048
  6. COTRIMOXAZOLE [Concomitant]
     Active Substance: SULFAMETHOXAZOLE\TRIMETHOPRIM
     Dosage: 480 MILLIGRAM DAILY;
  7. PREDNISOLONE. [Suspect]
     Active Substance: PREDNISOLONE
     Dosage: 30 MILLIGRAM DAILY; IN THE MORNING
     Route: 048
  8. ORAMORPH SR SUSTAINED RELEASE [Concomitant]
     Active Substance: MORPHINE SULFATE
     Dosage: 2.5-5MG, AS NECESSARY

REACTIONS (6)
  - Gastritis erosive [Recovering/Resolving]
  - Rectal haemorrhage [Recovering/Resolving]
  - Upper gastrointestinal haemorrhage [Recovering/Resolving]
  - Barrett^s oesophagus [Recovering/Resolving]
  - Abdominal pain [Recovering/Resolving]
  - Peptic ulcer [Recovering/Resolving]
